FAERS Safety Report 17596714 (Version 3)
Quarter: 2024Q4

REPORT INFORMATION
  Report Type: Report from Study
  Country: CA (occurrence: None)
  Receive Date: 20200330
  Receipt Date: 20241022
  Transmission Date: 20250114
  Serious: Yes (Other)
  Sender: ORION
  Company Number: CA-ORION CORPORATION ORION PHARMA-TREX2020-1575

PATIENT
  Age: 35 Year
  Sex: Male

DRUGS (8)
  1. METHOTREXATE [Suspect]
     Active Substance: METHOTREXATE
     Indication: Product used for unknown indication
  2. COSENTYX [Suspect]
     Active Substance: SECUKINUMAB
     Indication: Psoriasis
  3. COSENTYX [Suspect]
     Active Substance: SECUKINUMAB
  4. COSENTYX [Suspect]
     Active Substance: SECUKINUMAB
  5. BETADERM [Concomitant]
     Active Substance: BETAMETHASONE VALERATE
  6. CLOTRIMAZOLE [Concomitant]
     Active Substance: CLOTRIMAZOLE
  7. COAL TAR [Concomitant]
     Active Substance: COAL TAR
  8. DOVONEX [Concomitant]
     Active Substance: CALCIPOTRIENE

REACTIONS (6)
  - Body surface area increased [Unknown]
  - Pharyngitis streptococcal [Recovered/Resolved]
  - Psoriasis area severity index increased [Unknown]
  - Inappropriate schedule of product administration [Unknown]
  - Drug ineffective [Recovered/Resolved]
  - Psoriasis [Recovered/Resolved]
